FAERS Safety Report 18675077 (Version 3)
Quarter: 2021Q1

REPORT INFORMATION
  Report Type: Report from Study
  Country: JP (occurrence: JP)
  Receive Date: 20201229
  Receipt Date: 20210122
  Transmission Date: 20210419
  Serious: Yes (Death, Hospitalization, Other)
  Sender: FDA-Public Use
  Company Number: JP-GLAXOSMITHKLINE-JP2020JPN255912

PATIENT
  Age: 8 Decade
  Sex: Male
  Weight: 62.1 kg

DRUGS (48)
  1. FEBURIC [Concomitant]
     Active Substance: FEBUXOSTAT
     Dosage: 20 MG, QD
     Dates: start: 20190424, end: 20200304
  2. SYMBICORT [Concomitant]
     Active Substance: BUDESONIDE\FORMOTEROL FUMARATE DIHYDRATE
     Dosage: 840 ?G, 1D
     Route: 055
     Dates: start: 20190523, end: 20190815
  3. SENNOSIDES TABLET [Concomitant]
     Active Substance: SENNOSIDES
  4. ENALAPRIL MALEATE TABLETS [Concomitant]
  5. MEPOLIZUMAB [Suspect]
     Active Substance: MEPOLIZUMAB
     Dosage: 300 MG
     Route: 058
     Dates: start: 20191205, end: 20191205
  6. PREDONINE [Suspect]
     Active Substance: PREDNISOLONE
     Dosage: 12.5 MG, 1D
     Route: 048
     Dates: end: 20190619
  7. PREDONINE [Suspect]
     Active Substance: PREDNISOLONE
     Dosage: 10 MG, 1D
     Route: 048
     Dates: start: 20190620, end: 20190702
  8. OLOPATADINE HYDROCHLORIDE TABLETS [Concomitant]
     Active Substance: OLOPATADINE HYDROCHLORIDE
  9. SILECE TABLET [Concomitant]
  10. SENNOSIDES TABLET [Concomitant]
     Active Substance: SENNOSIDES
  11. MEPOLIZUMAB [Suspect]
     Active Substance: MEPOLIZUMAB
     Dosage: 300 MG
     Route: 058
     Dates: start: 20191010, end: 20191010
  12. PREDONINE (PREDNISOLONE SODIUM SUCCINATE) [Suspect]
     Active Substance: PREDNISOLONE SODIUM SUCCINATE
     Indication: EOSINOPHILIC GRANULOMATOSIS WITH POLYANGIITIS
     Dosage: 10 MG, SINGLE
     Route: 042
     Dates: start: 20190829, end: 20190829
  13. DIART TABLET [Suspect]
     Active Substance: AZOSEMIDE
     Dosage: UNK
  14. C?CYSTEN [Concomitant]
     Active Substance: CARBOCYSTEINE
  15. FLUNITRAZEPAM TABLETS [Concomitant]
     Dosage: UNK
  16. MEPOLIZUMAB [Suspect]
     Active Substance: MEPOLIZUMAB
     Dosage: 300 MG
     Route: 058
     Dates: start: 20190619, end: 20190619
  17. SYMBICORT [Concomitant]
     Active Substance: BUDESONIDE\FORMOTEROL FUMARATE DIHYDRATE
     Dosage: 1280 ?G, 1D
     Route: 055
     Dates: end: 20190522
  18. AMITIZA CAPSULE [Concomitant]
     Dosage: UNK
  19. MEPOLIZUMAB [Suspect]
     Active Substance: MEPOLIZUMAB
     Indication: EOSINOPHILIC GRANULOMATOSIS WITH POLYANGIITIS
     Dosage: 300 MG
     Route: 058
     Dates: start: 20190327, end: 20190327
  20. MEPOLIZUMAB [Suspect]
     Active Substance: MEPOLIZUMAB
     Dosage: 300 MG
     Route: 058
     Dates: start: 20190717, end: 20190717
  21. MEPOLIZUMAB [Suspect]
     Active Substance: MEPOLIZUMAB
     Dosage: 300 MG
     Route: 058
     Dates: start: 20190911, end: 20190911
  22. SYMBICORT [Concomitant]
     Active Substance: BUDESONIDE\FORMOTEROL FUMARATE DIHYDRATE
     Dosage: 1680 ?G, 1D
     Route: 055
     Dates: start: 20190816, end: 20190907
  23. BAKTAR COMBINATION TABLETS [Concomitant]
     Active Substance: SULFAMETHOXAZOLE\TRIMETHOPRIM
     Indication: ANTIFUNGAL PROPHYLAXIS
     Dosage: UNK
  24. SPIRIVA RESPIMAT [Concomitant]
     Active Substance: TIOTROPIUM BROMIDE
     Dosage: UNK
  25. MEPOLIZUMAB [Suspect]
     Active Substance: MEPOLIZUMAB
     Dosage: 300 MG
     Route: 058
     Dates: start: 20190424, end: 20190424
  26. MEPOLIZUMAB [Suspect]
     Active Substance: MEPOLIZUMAB
     Dosage: 300 MG
     Route: 058
     Dates: start: 20190522, end: 20190522
  27. MEPOLIZUMAB [Suspect]
     Active Substance: MEPOLIZUMAB
     Dosage: 300 MG
     Route: 058
     Dates: start: 20191107, end: 20191107
  28. MEPOLIZUMAB [Suspect]
     Active Substance: MEPOLIZUMAB
     Dosage: 300 MG
     Route: 058
     Dates: start: 20200102, end: 20200102
  29. MEPOLIZUMAB [Suspect]
     Active Substance: MEPOLIZUMAB
     Dosage: 300 MG
     Route: 058
     Dates: start: 20200227, end: 20200227
  30. SPIRONOLACTONE TABLETS [Suspect]
     Active Substance: SPIRONOLACTONE
     Dosage: UNK
  31. SYMBICORT [Concomitant]
     Active Substance: BUDESONIDE\FORMOTEROL FUMARATE DIHYDRATE
     Dosage: 840 ?G, 1D
     Route: 055
     Dates: end: 20200226
  32. REBAMIPIDE TABLETS [Concomitant]
  33. MEPOLIZUMAB [Suspect]
     Active Substance: MEPOLIZUMAB
     Dosage: 300 MG
     Route: 058
     Dates: start: 20200130, end: 20200130
  34. PREDONINE [Suspect]
     Active Substance: PREDNISOLONE
     Dosage: 12.5 MG, 1D
     Dates: start: 20190703, end: 20190829
  35. PREDONINE [Suspect]
     Active Substance: PREDNISOLONE
     Dosage: 22.5 MG, 1D
     Dates: start: 20191114, end: 20200303
  36. TAKECAB TABLETS [Concomitant]
     Active Substance: VONOPRAZAN FUMARATE
  37. INFLUENZA HA VACCINE [Concomitant]
     Active Substance: INFLUENZA VIRUS VACCINE
     Indication: IMMUNISATION
  38. BONOTEO TABLETS [Concomitant]
  39. TELEMINSOFT SUPPOSITORIES [Concomitant]
  40. PRANLUKAST CAPSULE [Concomitant]
  41. PREDONINE [Suspect]
     Active Substance: PREDNISOLONE
     Indication: EOSINOPHILIC GRANULOMATOSIS WITH POLYANGIITIS
     Dosage: 17.5 MG, QD
  42. PREDONINE [Suspect]
     Active Substance: PREDNISOLONE
     Dosage: 22.5 MG, 1D
     Dates: start: 20190830, end: 20191002
  43. IMURAN [Suspect]
     Active Substance: AZATHIOPRINE
     Indication: EOSINOPHILIC GRANULOMATOSIS WITH POLYANGIITIS
     Dosage: 50 MG
     Dates: start: 20190830, end: 20191127
  44. BENZALIN TABLETS [Concomitant]
  45. ONON CAPSULES [Concomitant]
  46. AZOSEMIDE TABLET [Concomitant]
  47. MEPOLIZUMAB [Suspect]
     Active Substance: MEPOLIZUMAB
     Dosage: 300 MG
     Route: 058
     Dates: start: 20190814, end: 20190814
  48. PREDONINE [Suspect]
     Active Substance: PREDNISOLONE
     Dosage: 20 MG, 1D
     Dates: start: 20191003, end: 20191113

REACTIONS (15)
  - Nausea [Recovered/Resolved]
  - Muscular weakness [Unknown]
  - Drug ineffective [Unknown]
  - Cellulitis [Recovered/Resolved]
  - Oesophageal candidiasis [Recovered/Resolved]
  - Stomatitis [Recovered/Resolved]
  - Hyperglycaemia [Recovered/Resolved]
  - Muscular weakness [Fatal]
  - Eosinophilic granulomatosis with polyangiitis [Recovered/Resolved]
  - Oedema peripheral [Unknown]
  - Myelosuppression [Recovered/Resolved]
  - Hypokalaemia [Recovered/Resolved]
  - Oedema [Recovered/Resolved]
  - Condition aggravated [Recovered/Resolved]
  - Skin erosion [Not Recovered/Not Resolved]

NARRATIVE: CASE EVENT DATE: 20190815
